FAERS Safety Report 13272579 (Version 1)
Quarter: 2017Q1

REPORT INFORMATION
  Report Type: Spontaneous
  Country: US (occurrence: US)
  Receive Date: 20170226
  Receipt Date: 20170226
  Transmission Date: 20170428
  Serious: Yes (Other)
  Sender: FDA-Public Use
  Company Number: None

PATIENT
  Age: 19 Year
  Sex: Female
  Weight: 71.9 kg

DRUGS (1)
  1. MEFLOQUINE [Suspect]
     Active Substance: MEFLOQUINE
     Dates: start: 20170208, end: 20170222

REACTIONS (3)
  - Anxiety [None]
  - Abnormal behaviour [None]
  - Suicidal behaviour [None]

NARRATIVE: CASE EVENT DATE: 20170226
